FAERS Safety Report 19915855 (Version 4)
Quarter: 2022Q1

REPORT INFORMATION
  Report Type: Spontaneous
  Country: PL (occurrence: PL)
  Receive Date: 20211005
  Receipt Date: 20220310
  Transmission Date: 20220423
  Serious: Yes (Hospitalization, Disabling, Other)
  Sender: FDA-Public Use
  Company Number: PL-CELGENE-POL-20210904952

PATIENT
  Age: 86 Year
  Sex: Male

DRUGS (12)
  1. VENETOCLAX [Suspect]
     Active Substance: VENETOCLAX
     Indication: Acute myeloid leukaemia
     Route: 048
     Dates: start: 20210823, end: 20210823
  2. VENETOCLAX [Suspect]
     Active Substance: VENETOCLAX
     Route: 048
     Dates: start: 20210824, end: 20210824
  3. VENETOCLAX [Suspect]
     Active Substance: VENETOCLAX
     Route: 048
     Dates: start: 20210825, end: 20210825
  4. PEVONEDISTAT [Suspect]
     Active Substance: PEVONEDISTAT
     Indication: Acute myeloid leukaemia
     Route: 048
     Dates: start: 20210823, end: 20210823
  5. PEVONEDISTAT [Suspect]
     Active Substance: PEVONEDISTAT
     Route: 048
     Dates: start: 20210824, end: 20210824
  6. PEVONEDISTAT [Suspect]
     Active Substance: PEVONEDISTAT
     Route: 048
     Dates: start: 20210825, end: 20210825
  7. AZACITIDINE [Suspect]
     Active Substance: AZACITIDINE
     Indication: Acute myeloid leukaemia
     Route: 048
     Dates: start: 20210823, end: 20210823
  8. AZACITIDINE [Suspect]
     Active Substance: AZACITIDINE
     Route: 048
     Dates: start: 20210824, end: 20210824
  9. AZACITIDINE [Suspect]
     Active Substance: AZACITIDINE
     Route: 048
     Dates: start: 20210825, end: 20210825
  10. METFORMIN [Concomitant]
     Active Substance: METFORMIN HYDROCHLORIDE
     Indication: Type 2 diabetes mellitus
     Route: 065
  11. ALLOPURINOL [Concomitant]
     Active Substance: ALLOPURINOL
     Indication: Blood uric acid increased
     Route: 065
  12. PANTOPRAZOLE SODIUM [Concomitant]
     Active Substance: PANTOPRAZOLE SODIUM
     Indication: Gastritis prophylaxis
     Route: 065

REACTIONS (2)
  - Lower gastrointestinal haemorrhage [Recovered/Resolved]
  - Thrombocytopenia [Recovered/Resolved]

NARRATIVE: CASE EVENT DATE: 20210909
